FAERS Safety Report 18640690 (Version 3)
Quarter: 2020Q4

REPORT INFORMATION
  Report Type: Spontaneous
  Country: CA (occurrence: CA)
  Receive Date: 20201221
  Receipt Date: 20201228
  Transmission Date: 20210114
  Serious: Yes (Other)
  Sender: FDA-Public Use
  Company Number: CA-CELLTRION INC.-2020CA021878

PATIENT

DRUGS (10)
  1. ACYCLOVIR [ACICLOVIR] [Concomitant]
     Active Substance: ACYCLOVIR
     Indication: HERPES ZOSTER
     Dosage: UNK
  2. INFLECTRA [Suspect]
     Active Substance: INFLIXIMAB-DYYB
     Dosage: 400 MG, 0,2,6 WEEKS, THEN EVERY 8 WEEKS
     Route: 042
     Dates: start: 20201020
  3. BENADRYL [Concomitant]
     Active Substance: DIPHENHYDRAMINE HYDROCHLORIDE
     Indication: PREMEDICATION
     Dosage: UNK
     Dates: start: 20201214, end: 20201214
  4. INFLECTRA [Suspect]
     Active Substance: INFLIXIMAB-DYYB
     Indication: ANKYLOSING SPONDYLITIS
     Dosage: 300 MG, 0, 2, 6 WEEKS, THEN EVERY 8 WEEKS
     Route: 042
     Dates: start: 20200415
  5. INFLECTRA [Suspect]
     Active Substance: INFLIXIMAB-DYYB
     Dosage: 39 ML OF 400 MG/250 ML NORMAL SALINE
     Route: 042
     Dates: start: 20200725, end: 20200725
  6. TRAMADOL. [Concomitant]
     Active Substance: TRAMADOL
     Dosage: 50 MG, 4X/DAY
     Route: 065
  7. HYDROCORTISONE. [Concomitant]
     Active Substance: HYDROCORTISONE
     Dosage: UNK
     Dates: start: 20201214, end: 20201214
  8. INFLECTRA [Suspect]
     Active Substance: INFLIXIMAB-DYYB
     Dosage: 400 MG, 0,2,6 WEEKS, THEN EVERY 8 WEEKS
     Route: 042
     Dates: start: 20201214, end: 20201214
  9. INFLECTRA [Suspect]
     Active Substance: INFLIXIMAB-DYYB
     Dosage: 300 MG, 0, 2, 6 WEEKS, THEN EVERY 8 WEEKS)
     Route: 042
     Dates: start: 20200429
  10. HYDROCORTISONE. [Concomitant]
     Active Substance: HYDROCORTISONE
     Indication: PREMEDICATION
     Dosage: 100 MG
     Route: 042
     Dates: start: 20201020, end: 20201020

REACTIONS (18)
  - Herpes zoster [Not Recovered/Not Resolved]
  - Rhinorrhoea [Recovered/Resolved]
  - Sinusitis [Recovered/Resolved]
  - Anaphylactic reaction [Unknown]
  - Throat tightness [Recovered/Resolved]
  - Product administration interrupted [Unknown]
  - Lymphadenopathy [Not Recovered/Not Resolved]
  - Off label use [Unknown]
  - Urticaria [Not Recovered/Not Resolved]
  - Product use issue [Unknown]
  - Hot flush [Unknown]
  - Dizziness [Recovered/Resolved]
  - Crohn^s disease [Unknown]
  - Sinus disorder [Recovered/Resolved]
  - Pruritus [Not Recovered/Not Resolved]
  - Somnolence [Unknown]
  - Flushing [Recovering/Resolving]
  - Oropharyngeal pain [Recovered/Resolved]

NARRATIVE: CASE EVENT DATE: 2020
